FAERS Safety Report 24360448 (Version 1)
Quarter: 2024Q3

REPORT INFORMATION
  Report Type: Spontaneous
  Country: HR (occurrence: HR)
  Receive Date: 20240925
  Receipt Date: 20240925
  Transmission Date: 20241016
  Serious: Yes (Hospitalization, Other)
  Sender: Haleon PLC
  Company Number: HR-EMA-20111024-mkevhumanwt-131629912

PATIENT
  Age: 31 Year
  Sex: Female

DRUGS (55)
  1. PANTOPRAZOLE [Suspect]
     Active Substance: PANTOPRAZOLE
     Indication: Product used for unknown indication
     Dosage: 20 MG, UNK
  2. FEXOFENADINE HYDROCHLORIDE [Suspect]
     Active Substance: FEXOFENADINE HYDROCHLORIDE
     Indication: Pain
     Dosage: 180 MG,UNK
     Route: 065
  3. FEXOFENADINE HYDROCHLORIDE [Suspect]
     Active Substance: FEXOFENADINE HYDROCHLORIDE
     Indication: Headache
  4. PREGABALIN [Suspect]
     Active Substance: PREGABALIN
     Indication: Pain
     Dosage: 300 MG, BID
  5. IBUPROFEN [Suspect]
     Active Substance: IBUPROFEN
     Indication: Pain
     Dosage: 400 MG
  6. PIROXICAM [Suspect]
     Active Substance: PIROXICAM
     Indication: Pain
     Dosage: 20 MG
  7. NEUROBION FORTE [Suspect]
     Active Substance: CYANOCOBALAMIN\PYRIDOXINE HYDROCHLORIDE\THIAMINE DISULFIDE
     Indication: Pain
     Dosage: 2 X 1 TABLET
  8. RANITIDINE [Suspect]
     Active Substance: RANITIDINE
     Indication: Product used for unknown indication
     Dosage: DOSE: 2X150 MG
  9. BUPRENORPHINE [Suspect]
     Active Substance: BUPRENORPHINE
     Indication: Bradyphrenia
     Dosage: 70 UG, Q3D
     Route: 065
  10. BUPRENORPHINE [Suspect]
     Active Substance: BUPRENORPHINE
     Indication: Pain
  11. TRAMADOL [Concomitant]
     Active Substance: TRAMADOL
     Indication: Pain
     Dosage: 37.5 MG, TID
  12. FENTANYL [Suspect]
     Active Substance: FENTANYL\FENTANYL CITRATE
     Indication: Pain
     Dosage: 100 UG/72 H, UNK
     Route: 062
  13. ALPRAZOLAM [Suspect]
     Active Substance: ALPRAZOLAM
     Indication: Pain
     Dosage: 0.5 MG, TID
     Route: 065
  14. ALPRAZOLAM [Suspect]
     Active Substance: ALPRAZOLAM
     Indication: Persistent depressive disorder
  15. DIAZEPAM [Suspect]
     Active Substance: DIAZEPAM
     Indication: Pain
     Dosage: DOSE: 2 MG, 2 MG, 5 MG QD
     Route: 065
  16. DIAZEPAM [Suspect]
     Active Substance: DIAZEPAM
     Dosage: 5 MG, QD
     Route: 065
  17. SERTRALINE HYDROCHLORIDE [Suspect]
     Active Substance: SERTRALINE HYDROCHLORIDE
     Indication: Pain
     Dosage: DOSE: 50 MG 1X1
  18. LEVOTHYROXINE SODIUM [Suspect]
     Active Substance: LEVOTHYROXINE SODIUM
     Indication: Pain
     Dosage: 50 UG,UNK
     Route: 065
  19. LEVOTHYROXINE SODIUM [Suspect]
     Active Substance: LEVOTHYROXINE SODIUM
     Indication: Quadriparesis
     Dosage: 50 UG,UNK
     Route: 065
  20. LEVOTHYROXINE SODIUM [Suspect]
     Active Substance: LEVOTHYROXINE SODIUM
     Dosage: 50 UG,UNK
     Route: 065
  21. LEVOTHYROXINE SODIUM [Suspect]
     Active Substance: LEVOTHYROXINE SODIUM
     Dosage: 50 UG,UNK
     Route: 065
  22. LEVOTHYROXINE SODIUM [Suspect]
     Active Substance: LEVOTHYROXINE SODIUM
     Dosage: 75 UG
     Route: 065
  23. LEVOTHYROXINE SODIUM [Suspect]
     Active Substance: LEVOTHYROXINE SODIUM
     Dosage: 50 UG,UNK
     Route: 065
  24. LEVOTHYROXINE SODIUM [Suspect]
     Active Substance: LEVOTHYROXINE SODIUM
     Dosage: 50 UG,UNK, 75 UG
     Route: 065
  25. CARBAMAZEPINE [Interacting]
     Active Substance: CARBAMAZEPINE
     Indication: Pain
     Dosage: DOSE: 3X200 MG
  26. ACETAMINOPHEN\TRAMADOL HYDROCHLORIDE [Suspect]
     Active Substance: ACETAMINOPHEN\TRAMADOL HYDROCHLORIDE
     Indication: Pain
     Dosage: PP
     Route: 065
  27. ACETAMINOPHEN\TRAMADOL HYDROCHLORIDE [Suspect]
     Active Substance: ACETAMINOPHEN\TRAMADOL HYDROCHLORIDE
     Dosage: 2 DF QD 3X2(375/325 MG)
     Route: 065
  28. ACETAMINOPHEN\TRAMADOL HYDROCHLORIDE [Suspect]
     Active Substance: ACETAMINOPHEN\TRAMADOL HYDROCHLORIDE
     Dosage: 37.5 MG/325MG 2 TABLETS 3 TIMES PER DAY
     Route: 065
  29. ACETAMINOPHEN\TRAMADOL HYDROCHLORIDE [Suspect]
     Active Substance: ACETAMINOPHEN\TRAMADOL HYDROCHLORIDE
     Dosage: 37.5 MG/325MG 2 TABLETS 3 TIMES PER DAY
     Route: 065
  30. ACETAMINOPHEN\TRAMADOL HYDROCHLORIDE [Suspect]
     Active Substance: ACETAMINOPHEN\TRAMADOL HYDROCHLORIDE
     Dosage: DOSE: 3X 2 (375/325MG)
     Route: 065
  31. ACETAMINOPHEN\TRAMADOL HYDROCHLORIDE [Suspect]
     Active Substance: ACETAMINOPHEN\TRAMADOL HYDROCHLORIDE
     Dosage: 37.5 MG/325MG 2 TABLETS 3 TIMES PER DAY
     Route: 065
  32. ACETAMINOPHEN\TRAMADOL HYDROCHLORIDE [Suspect]
     Active Substance: ACETAMINOPHEN\TRAMADOL HYDROCHLORIDE
     Dosage: 37.5 MG/325MG 2 TABLETS 3 TIMES PER DAY
     Route: 065
  33. ACETAMINOPHEN\TRAMADOL HYDROCHLORIDE [Suspect]
     Active Substance: ACETAMINOPHEN\TRAMADOL HYDROCHLORIDE
     Dosage: PP
     Route: 065
  34. ACETAMINOPHEN\TRAMADOL HYDROCHLORIDE [Suspect]
     Active Substance: ACETAMINOPHEN\TRAMADOL HYDROCHLORIDE
     Dosage: 2 DF TID
     Route: 065
  35. GINKGO [Suspect]
     Active Substance: GINKGO
     Indication: Rash
     Dosage: 120 MG
     Route: 065
  36. GINKGO [Suspect]
     Active Substance: GINKGO
     Indication: Pain
  37. GINKGO [Suspect]
     Active Substance: GINKGO
     Indication: Pain
  38. NEUROBION FORTE [Concomitant]
     Active Substance: CYANOCOBALAMIN\PYRIDOXINE HYDROCHLORIDE\THIAMINE DISULFIDE
     Indication: Asthenia
     Dosage: 2 X 1 TABLET
  39. GABAPENTIN [Suspect]
     Active Substance: GABAPENTIN
     Indication: Pain
     Dosage: 300 MG TID
     Route: 065
  40. GABAPENTIN [Suspect]
     Active Substance: GABAPENTIN
     Indication: Mental disorder
  41. ESOMEPRAZOLE [Suspect]
     Active Substance: ESOMEPRAZOLE
     Indication: Asthenia
     Dosage: 20 MG, BID
     Route: 065
  42. OXYCODONE [Suspect]
     Active Substance: OXYCODONE
     Indication: Pain
     Dosage: MAR10 10MG PP
     Route: 065
  43. OXYCODONE [Suspect]
     Active Substance: OXYCODONE
     Dosage: 10 MG, TID
     Route: 065
  44. OXYCODONE [Suspect]
     Active Substance: OXYCODONE
     Dosage: 13 MG, QD
     Route: 065
  45. OXYCODONE [Suspect]
     Active Substance: OXYCODONE
     Dosage: TIME INTERVAL: 0.33333333 DAYS: 10 MG, TID
  46. OXYCODONE [Suspect]
     Active Substance: OXYCODONE
     Dosage: 10 MG, TID
     Route: 065
  47. OXYCODONE [Suspect]
     Active Substance: OXYCODONE
     Dosage: 10 MG, QD
     Route: 065
  48. OXYCODONE [Suspect]
     Active Substance: OXYCODONE
     Dosage: 10 MG, TID
     Route: 065
  49. SERTRALINE [Suspect]
     Active Substance: SERTRALINE HYDROCHLORIDE
     Indication: Headache
     Dosage: 50 MG, QD
  50. GABAPENTIN [Suspect]
     Active Substance: GABAPENTIN
     Indication: Mental disorder
     Dosage: 300 MG, DAILY
  51. SERTRALINE HYDROCHLORIDE [Suspect]
     Active Substance: SERTRALINE HYDROCHLORIDE
     Indication: Pain
     Dosage: 1DF:1 TABLET APR09 50MG
  52. BACLOFEN [Suspect]
     Active Substance: BACLOFEN
     Indication: Product used for unknown indication
     Dosage: DOSE: 3X25 MG
  53. BACLOFEN [Suspect]
     Active Substance: BACLOFEN
     Dosage: 25 MG, TID
  54. BACLOFEN [Suspect]
     Active Substance: BACLOFEN
     Dosage: 25 MG, TID
  55. BACLOFEN [Suspect]
     Active Substance: BACLOFEN
     Dosage: DOSE: 3X10 MG

REACTIONS (40)
  - Syncope [Unknown]
  - Euphoric mood [Unknown]
  - Pruritus [Unknown]
  - Vomiting [Unknown]
  - Schizophrenia [Unknown]
  - Pain [Unknown]
  - Quadriparesis [Unknown]
  - Ataxia [Unknown]
  - Depression [Unknown]
  - Headache [Unknown]
  - Diplopia [Unknown]
  - Loss of consciousness [Unknown]
  - Pain [Unknown]
  - Gastrointestinal motility disorder [Unknown]
  - Feeling abnormal [Unknown]
  - Nausea [Unknown]
  - Disturbance in attention [Unknown]
  - Erythema [Unknown]
  - Asthenia [Unknown]
  - Asthenia [Unknown]
  - Oedema [Unknown]
  - Neurosis [Unknown]
  - Persistent depressive disorder [Unknown]
  - Dizziness [Unknown]
  - Sedation [Unknown]
  - Anxiety [Unknown]
  - Fatigue [Unknown]
  - Confusional state [Unknown]
  - Sensory disturbance [Unknown]
  - Constipation [Unknown]
  - Pain [Unknown]
  - Cognitive disorder [Unknown]
  - Disturbance in attention [Unknown]
  - Musculoskeletal stiffness [Unknown]
  - Neurosis [Unknown]
  - Asthenia [Unknown]
  - Rash [Unknown]
  - Psychomotor skills impaired [Unknown]
  - Conversion disorder [Unknown]
  - Ill-defined disorder [Unknown]
